FAERS Safety Report 21484809 (Version 1)
Quarter: 2022Q4

REPORT INFORMATION
  Report Type: Report from Study
  Country: US (occurrence: US)
  Receive Date: 20221020
  Receipt Date: 20221020
  Transmission Date: 20230112
  Serious: No
  Sender: FDA-Public Use
  Company Number: US-ABBVIE-4166641

PATIENT
  Sex: Male

DRUGS (3)
  1. MAVYRET [Suspect]
     Active Substance: GLECAPREVIR\PIBRENTASVIR
     Indication: Chronic hepatitis C
     Dates: start: 2022, end: 2022
  2. MAVYRET [Suspect]
     Active Substance: GLECAPREVIR\PIBRENTASVIR
     Indication: Chronic hepatitis C
     Dates: start: 2022
  3. DICLOFENAC SODIUM [Concomitant]
     Active Substance: DICLOFENAC SODIUM
     Indication: Product used for unknown indication

REACTIONS (7)
  - Fibrosis [Unknown]
  - Papule [Recovered/Resolved]
  - Peripheral swelling [Unknown]
  - Pruritus [Unknown]
  - Blood test abnormal [Unknown]
  - Pain in extremity [Unknown]
  - Limb deformity [Unknown]

NARRATIVE: CASE EVENT DATE: 20210101
